FAERS Safety Report 10098629 (Version 1)
Quarter: 2014Q2

REPORT INFORMATION
  Report Type: Spontaneous
  Country: US (occurrence: None)
  Receive Date: 20140422
  Receipt Date: 20140422
  Transmission Date: 20141212
  Serious: Yes (Death)
  Sender: FDA-Public Use
  Company Number: None

PATIENT
  Age: 61 Year
  Sex: Male
  Weight: 86.2 kg

DRUGS (17)
  1. ZANAMIVIR [Suspect]
     Indication: INFLUENZA
     Dosage: 600MG Q12H IV
     Route: 042
     Dates: start: 20140401, end: 20140406
  2. AMIODARONE IV [Concomitant]
  3. ERYTHROMYCIN LACTOBIONATE [Concomitant]
  4. VASOPRESSIN IV [Concomitant]
  5. PHENYLEPHRINE IV [Concomitant]
  6. OCTREOTIDE IV [Concomitant]
  7. METRONIDAZOLE IV [Concomitant]
  8. CEFTRIAXONE IV [Concomitant]
  9. RIFAXIMIN [Concomitant]
  10. AMPICILLIN/SULBACTAM [Concomitant]
  11. CEFEPIME [Concomitant]
  12. PIPERACILLIN/TAZOBACTAM [Concomitant]
  13. ACETAMINOPHEN [Concomitant]
  14. HYDROCORTISONE IV [Concomitant]
  15. NPH INSULIN [Concomitant]
  16. PANTOPRAZOLE IV [Concomitant]
  17. LACTULOSE [Concomitant]

REACTIONS (1)
  - Acute hepatic failure [None]
